FAERS Safety Report 14177018 (Version 1)
Quarter: 2017Q4

REPORT INFORMATION
  Report Type: Spontaneous
  Country: US (occurrence: US)
  Receive Date: 20171110
  Receipt Date: 20171110
  Transmission Date: 20180321
  Serious: Yes (Hospitalization)
  Sender: FDA-Public Use
  Company Number: US-B.I. PHARMACEUTICALS,INC./RIDGEFIELD-2017-BI-060160

PATIENT
  Age: 67 Year
  Sex: Female

DRUGS (5)
  1. SPIRIVA [Suspect]
     Active Substance: TIOTROPIUM BROMIDE MONOHYDRATE
     Indication: BRONCHITIS CHRONIC
     Dosage: 2 INHALATIONS FROM ONE CAPSULE DAILY; ADMINISTRATION CORRECT? YES
     Route: 055
     Dates: start: 201404
  2. LORAZEPAM. [Concomitant]
     Active Substance: LORAZEPAM
     Indication: ANXIETY
     Dosage: ONE CAPLET EVERY 6 HOURS; FORM STRENGTH: 0.5MG;
     Route: 048
  3. ALBUTEROL SULFATE NEBULIZER [Concomitant]
     Indication: BRONCHITIS CHRONIC
     Route: 065
  4. FUROSEMIDE. [Concomitant]
     Active Substance: FUROSEMIDE
     Indication: CARDIAC FAILURE
     Dosage: FORM STRENGTH/UNIT DOSE/DAILY DOSE: 20NMG
     Route: 048
  5. VENTOLIN [Concomitant]
     Active Substance: ALBUTEROL SULFATE
     Indication: BRONCHITIS CHRONIC
     Route: 065

REACTIONS (4)
  - Chest pain [Unknown]
  - Cough [Unknown]
  - Dyspnoea [Recovered/Resolved]
  - Back pain [Unknown]

NARRATIVE: CASE EVENT DATE: 20170915
